FAERS Safety Report 6454287-4 (Version None)
Quarter: 2009Q4

REPORT INFORMATION
  Report Type: 
  Country: None (occurrence: None)
  Receive Date: 20091124
  Receipt Date: 20091111
  Transmission Date: 20100525
  Serious: Yes (Death)
  Sender: FDA-Public Use
  Company Number: US-ELI_LILLY_AND_COMPANY-US200606001765

PATIENT
  Sex: Male
  Weight: 74.829 kg

DRUGS (11)
  1. ZYPREXA [Suspect]
     Indication: PSYCHOTIC DISORDER
     Dosage: 5 MG, UNK
     Route: 048
     Dates: start: 20040121, end: 20040123
  2. ZYPREXA [Suspect]
     Dosage: 10 MG, UNK
     Route: 048
     Dates: start: 20040123
  3. ZYPREXA [Suspect]
     Dosage: 10 MG, EACH EVENING
     Route: 048
     Dates: start: 20040202
  4. PAXIL [Concomitant]
     Indication: DEPRESSION
     Dosage: 12.5 MG, UNK
     Route: 048
     Dates: start: 20030406
  5. PAXIL [Concomitant]
     Dosage: 25 MG, UNK
     Dates: start: 20040406
  6. HALDOL [Concomitant]
     Route: 048
     Dates: start: 20040120
  7. LORAZEPAM [Concomitant]
     Indication: ANXIETY
     Dosage: 1 MG, AS NEEDED
     Route: 048
     Dates: start: 20040120
  8. LORAZEPAM [Concomitant]
     Dosage: 15 MG, AS NEEDED
  9. LORAZEPAM [Concomitant]
     Dosage: 0.5 MG, UNK
     Dates: start: 20040317
  10. CAFFEINE [Concomitant]
     Dosage: 250 ML, DAILY (1/D)
  11. ALCOHOL [Concomitant]
     Dosage: 1 D/F, MONTHLY (1/M)

REACTIONS (5)
  - AKATHISIA [None]
  - ANXIETY [None]
  - COMPLETED SUICIDE [None]
  - DEPRESSION [None]
  - LETHARGY [None]
